FAERS Safety Report 9781366 (Version 1)
Quarter: 2013Q4

REPORT INFORMATION
  Report Type: Spontaneous
  Country: US (occurrence: None)
  Receive Date: 20131223
  Receipt Date: 20131223
  Transmission Date: 20140711
  Serious: Yes (Other)
  Sender: FDA-Public Use
  Company Number: None

PATIENT
  Age: 72 Year
  Sex: Male
  Weight: 105.9 kg

DRUGS (1)
  1. IFOSFAMIDE [Suspect]
     Route: 042
     Dates: start: 20131208

REACTIONS (5)
  - Toxicity to various agents [None]
  - Confusional state [None]
  - Dysarthria [None]
  - Eating disorder [None]
  - Nervous system disorder [None]
